FAERS Safety Report 6132610-8 (Version None)
Quarter: 2009Q1

REPORT INFORMATION
  Report Type: 
  Country: None (occurrence: None)
  Receive Date: 20090324
  Receipt Date: 20090309
  Transmission Date: 20090719
  Serious: Yes (Death)
  Sender: FDA-Public Use
  Company Number: 000509

PATIENT
  Sex: Male
  Weight: 73 kg

DRUGS (3)
  1. PROSTAVASIN /00501501/ (PROSTAVASIN) [Suspect]
     Indication: CARDIAC VENTRICULAR DISORDER
     Dosage: (INTRAVENOUS (NOT OTHERWISE SPECIFIED))
     Route: 042
  2. ADALAT [Concomitant]
  3. GLYBURIDE [Concomitant]

REACTIONS (2)
  - ISCHAEMIA [None]
  - MYOCARDIAL INFARCTION [None]
